FAERS Safety Report 23541545 (Version 1)
Quarter: 2024Q1

REPORT INFORMATION
  Report Type: Report from Study
  Country: NL (occurrence: NL)
  Receive Date: 20240219
  Receipt Date: 20240219
  Transmission Date: 20240410
  Serious: Yes (Hospitalization, Other)
  Sender: FDA-Public Use
  Company Number: NL-ABBVIE-5645091

PATIENT
  Sex: Male

DRUGS (7)
  1. CARBIDOPA\LEVODOPA [Suspect]
     Active Substance: CARBIDOPA\LEVODOPA
     Indication: Parkinson^s disease
     Dosage: ND: 4.0 ML, CND: 3.9 ML/H, END: 3.0 ML?DURATION TEXT: REMAINS AT 16 HOURS
     Route: 050
     Dates: start: 20230927, end: 20231123
  2. CARBIDOPA\LEVODOPA [Suspect]
     Active Substance: CARBIDOPA\LEVODOPA
     Dosage: MD: 0.0 ML, CD: 4.9 ML/H, ED: 3.0 ML?DURATION TEXT: REMAINS AT 24 HOURS
     Route: 050
     Dates: start: 20230927, end: 20230927
  3. CARBIDOPA\LEVODOPA [Suspect]
     Active Substance: CARBIDOPA\LEVODOPA
     Dosage: MD: 0.0 ML, CD: 4.9 ML/H, ED: 3.0 ML;?DURATION TEXT: REMAINS AT 16 HOURS
     Route: 050
     Dates: start: 20240215, end: 20240215
  4. CARBIDOPA\LEVODOPA [Suspect]
     Active Substance: CARBIDOPA\LEVODOPA
     Route: 050
     Dates: start: 20161028
  5. CARBIDOPA\LEVODOPA [Suspect]
     Active Substance: CARBIDOPA\LEVODOPA
     Dosage: ND: 4.0 ML, CND: 3.9 ML/H, END: 3.0 ML?DURATION TEXT: REMAINS AT 24 HOURS
     Route: 050
     Dates: start: 20240215
  6. CARBIDOPA\LEVODOPA [Suspect]
     Active Substance: CARBIDOPA\LEVODOPA
     Dosage: MD: 0.0 ML, CD: 4.9 ML/H, ED: 3.0 ML; ND: 4.0 ML, CND: 3.9 ML/H, END: 3.0 ML?DURATION TEXT: REMAI...
     Route: 050
     Dates: start: 20231123, end: 20240215
  7. MOVICOLON [Concomitant]
     Active Substance: POLYETHYLENE GLYCOL 3350\POTASSIUM CHLORIDE\SODIUM BICARBONATE\SODIUM CHLORIDE
     Indication: Abnormal faeces

REACTIONS (16)
  - Viral infection [Recovered/Resolved]
  - Freezing phenomenon [Not Recovered/Not Resolved]
  - Diarrhoea [Recovered/Resolved]
  - Muscle rigidity [Not Recovered/Not Resolved]
  - Incoherent [Not Recovered/Not Resolved]
  - Unevaluable event [Not Recovered/Not Resolved]
  - Memory impairment [Not Recovered/Not Resolved]
  - Dyskinesia [Not Recovered/Not Resolved]
  - Loss of personal independence in daily activities [Not Recovered/Not Resolved]
  - Tremor [Not Recovered/Not Resolved]
  - Cognitive disorder [Not Recovered/Not Resolved]
  - Loss of personal independence in daily activities [Not Recovered/Not Resolved]
  - On and off phenomenon [Not Recovered/Not Resolved]
  - Restlessness [Not Recovered/Not Resolved]
  - Nocturia [Not Recovered/Not Resolved]
  - Hallucination, visual [Not Recovered/Not Resolved]

NARRATIVE: CASE EVENT DATE: 20230101
